FAERS Safety Report 25159675 (Version 2)
Quarter: 2025Q2

REPORT INFORMATION
  Report Type: Spontaneous
  Country: US (occurrence: US)
  Receive Date: 20250404
  Receipt Date: 20250411
  Transmission Date: 20250716
  Serious: Yes (Hospitalization, Other)
  Sender: RANBAXY
  Company Number: US-SUN PHARMACEUTICAL INDUSTRIES LTD-2025R1-501868

PATIENT
  Age: 36 Year
  Sex: Female

DRUGS (1)
  1. ROSUVASTATIN [Suspect]
     Active Substance: ROSUVASTATIN
     Indication: Hyperlipidaemia
     Route: 065

REACTIONS (5)
  - Syncope [Unknown]
  - Loss of consciousness [Unknown]
  - Electrocardiogram QT prolonged [Recovered/Resolved]
  - Nausea [Unknown]
  - Feeling hot [Unknown]
